FAERS Safety Report 25668593 (Version 3)
Quarter: 2025Q3

REPORT INFORMATION
  Report Type: Spontaneous
  Country: US (occurrence: US)
  Receive Date: 20250812
  Receipt Date: 20250830
  Transmission Date: 20251021
  Serious: Yes (Death, Hospitalization)
  Sender: AMGEN
  Company Number: US-AMGEN-USASP2025158978

PATIENT
  Age: 90 Year
  Sex: Female

DRUGS (2)
  1. IMDELLTRA [Suspect]
     Active Substance: TARLATAMAB-DLLE
     Indication: Small cell lung cancer extensive stage
     Route: 065
     Dates: start: 20250806
  2. OXYGEN [Concomitant]
     Active Substance: OXYGEN

REACTIONS (3)
  - Cardiac arrest [Fatal]
  - Pyrexia [Unknown]
  - Dyspnoea [Recovering/Resolving]
